FAERS Safety Report 21208485 (Version 1)
Quarter: 2022Q3

REPORT INFORMATION
  Report Type: Spontaneous
  Country: JP (occurrence: JP)
  Receive Date: 20220812
  Receipt Date: 20220812
  Transmission Date: 20221027
  Serious: Yes (Death, Other)
  Sender: FDA-Public Use
  Company Number: JP-ONO-2021JP028077

PATIENT
  Age: 72 Year
  Sex: Male
  Weight: 54.4 kg

DRUGS (15)
  1. YERVOY [Suspect]
     Active Substance: IPILIMUMAB
     Indication: Non-small cell lung cancer recurrent
     Dosage: 50 MG, Q6W
     Route: 041
     Dates: start: 20210729, end: 20210729
  2. OPDIVO [Suspect]
     Active Substance: NIVOLUMAB
     Indication: Non-small cell lung cancer recurrent
     Route: 041
     Dates: start: 20210729, end: 20210729
  3. CARBOPLATIN [Suspect]
     Active Substance: CARBOPLATIN
     Indication: Non-small cell lung cancer recurrent
     Route: 041
     Dates: start: 20210729, end: 20210729
  4. ALIMTA [Suspect]
     Active Substance: PEMETREXED DISODIUM
     Indication: Non-small cell lung cancer recurrent
     Dosage: 750 MG
     Route: 041
     Dates: start: 20210729, end: 20210729
  5. POLARAMINE [Concomitant]
     Active Substance: DEXCHLORPHENIRAMINE MALEATE
     Indication: Prophylaxis
     Dosage: 5 MG, EVERYDAY
     Route: 041
     Dates: start: 20210729, end: 20210729
  6. POLARAMINE [Concomitant]
     Active Substance: DEXCHLORPHENIRAMINE MALEATE
     Indication: Prophylaxis
  7. DEXAMETHASONE SODIUM PHOSPHATE [Concomitant]
     Active Substance: DEXAMETHASONE SODIUM PHOSPHATE
     Indication: Prophylaxis
     Dosage: 6.6 MG, EVERYDAY
     Route: 041
     Dates: start: 20210729, end: 20210729
  8. DEXAMETHASONE SODIUM PHOSPHATE [Concomitant]
     Active Substance: DEXAMETHASONE SODIUM PHOSPHATE
     Indication: Prophylaxis
  9. ALOXI [Concomitant]
     Active Substance: PALONOSETRON HYDROCHLORIDE
     Indication: Prophylaxis
     Dosage: 75 MG, EVERYDAY
     Route: 041
     Dates: start: 20210729, end: 20210729
  10. ALOXI [Concomitant]
     Active Substance: PALONOSETRON HYDROCHLORIDE
     Indication: Prophylaxis
  11. PANVITAN [VITAMINS NOS] [Concomitant]
     Indication: Prophylaxis
     Route: 048
     Dates: start: 20210721, end: 20210818
  12. TRICODEIN [CODEINE PHOSPHATE] [Concomitant]
     Indication: Non-small cell lung cancer recurrent
     Dosage: 3 TIMES A DAY
     Route: 048
     Dates: start: 20210701, end: 20210818
  13. ASPIRIN [Concomitant]
     Active Substance: ASPIRIN
     Indication: Product used for unknown indication
     Dosage: 100 MG, EVERYDAY
     Route: 048
     Dates: end: 20210818
  14. NAPROXEN SODIUM [Concomitant]
     Active Substance: NAPROXEN SODIUM
     Indication: Lung adenocarcinoma
     Dosage: 100 MG, Q8H
     Route: 048
     Dates: start: 20210807, end: 20210818
  15. CEFEPIME [Concomitant]
     Active Substance: CEFEPIME HYDROCHLORIDE
     Indication: Tumour associated fever
     Dosage: 1 G
     Route: 065
     Dates: start: 20210805, end: 20210805

REACTIONS (3)
  - Interstitial lung disease [Fatal]
  - Deep vein thrombosis [Not Recovered/Not Resolved]
  - Tumour associated fever [Unknown]

NARRATIVE: CASE EVENT DATE: 20210805
